FAERS Safety Report 9612779 (Version 3)
Quarter: 2013Q4

REPORT INFORMATION
  Report Type: Spontaneous
  Country: US (occurrence: None)
  Receive Date: 20131008
  Receipt Date: 20131107
  Transmission Date: 20140711
  Serious: Yes (Other)
  Sender: FDA-Public Use
  Company Number: AUR-APL-2013-08112

PATIENT
  Age: 55 Year
  Sex: Female
  Weight: 77.11 kg

DRUGS (2)
  1. SERTRALINE [Suspect]
     Indication: PAIN
     Dosage: 50 MG, HALF TABLET ONLY, ORAL
     Route: 048
     Dates: start: 20130921
  2. VENTOLIN (SALBUTAMOL) [Concomitant]

REACTIONS (7)
  - Drug ineffective [None]
  - Anxiety [None]
  - Musculoskeletal stiffness [None]
  - Depression [None]
  - Malaise [None]
  - Wrong technique in drug usage process [None]
  - Product substitution issue [None]
